FAERS Safety Report 20440804 (Version 1)
Quarter: 2022Q1

REPORT INFORMATION
  Report Type: Report from Study
  Country: US (occurrence: US)
  Receive Date: 20220207
  Receipt Date: 20220207
  Transmission Date: 20220423
  Serious: Yes (Other)
  Sender: FDA-Public Use
  Company Number: US-ABBVIE-22K-163-4262041-00

PATIENT
  Age: 62 Year
  Sex: Male

DRUGS (3)
  1. HUMIRA [Suspect]
     Active Substance: ADALIMUMAB
     Indication: Ankylosing spondylitis
     Dosage: CITRATE FREE, INJECT INTO THE ABDOMEN OR THIGH ROTATING INJECTION SITES
     Route: 058
  2. SUMATRIPTAN SUCCINATE [Concomitant]
     Active Substance: SUMATRIPTAN SUCCINATE
     Indication: Product used for unknown indication
  3. TAMSULOSIN HYDROCHLORIDE [Concomitant]
     Active Substance: TAMSULOSIN HYDROCHLORIDE
     Indication: Product used for unknown indication

REACTIONS (16)
  - Aortic perforation [Unknown]
  - Cerebrovascular accident [Unknown]
  - Skin cancer [Unknown]
  - Malignant melanoma [Unknown]
  - Squamous cell carcinoma of skin [Unknown]
  - Lung neoplasm malignant [Unknown]
  - Basal cell carcinoma [Unknown]
  - Illness [Unknown]
  - Bell^s palsy [Unknown]
  - Hypersomnia [Recovered/Resolved]
  - Muscle fatigue [Unknown]
  - Dizziness [Unknown]
  - Facial paralysis [Unknown]
  - Road traffic accident [Unknown]
  - Chest pain [Unknown]
  - Pain [Unknown]

NARRATIVE: CASE EVENT DATE: 20220101
